FAERS Safety Report 7346289-0 (Version None)
Quarter: 2011Q1

REPORT INFORMATION
  Report Type: 
  Country: None (occurrence: None)
  Receive Date: 20110311
  Receipt Date: 20110308
  Transmission Date: 20110831
  Serious: No
  Sender: FDA-Public Use
  Company Number: US-PFIZER INC-2011052224

PATIENT
  Sex: Female

DRUGS (1)
  1. VIAGRA [Suspect]
     Dosage: UNK
     Route: 048
     Dates: start: 20110308

REACTIONS (3)
  - GENITAL DISCOMFORT [None]
  - ACCIDENTAL EXPOSURE [None]
  - ABDOMINAL PAIN UPPER [None]
